FAERS Safety Report 7087144-3 (Version None)
Quarter: 2010Q4

REPORT INFORMATION
  Report Type: 
  Country: None (occurrence: None)
  Receive Date: 20101106
  Receipt Date: 20101025
  Transmission Date: 20110411
  Serious: No
  Sender: FDA-Public Use
  Company Number: US-WYE-H18355010

PATIENT
  Age: 58 Year
  Sex: Female
  Weight: 48.58 kg

DRUGS (2)
  1. PREMARIN [Suspect]
     Indication: VULVOVAGINAL DRYNESS
     Dosage: UNKNOWN DOSE, SMALL AMOUNT APPLIED TWICE WEEKLY
     Route: 067
     Dates: start: 20100915
  2. LIPITOR [Concomitant]

REACTIONS (3)
  - ADNEXA UTERI PAIN [None]
  - BREAST PAIN [None]
  - BREAST TENDERNESS [None]
